FAERS Safety Report 8845363 (Version 1)
Quarter: 2012Q4

REPORT INFORMATION
  Report Type: Spontaneous
  Country: US (occurrence: None)
  Receive Date: 20121015
  Receipt Date: 20121015
  Transmission Date: 20130627
  Serious: Yes (Hospitalization)
  Sender: FDA-Public Use
  Company Number: 2012SUN00124

PATIENT
  Age: 50 Year
  Sex: Female

DRUGS (5)
  1. HYDROCHLOROTHIAZIDE [Suspect]
     Indication: DEPRESSION
  2. SERTRALINE (SERTRALINE HYDROCHLORIDE) [Concomitant]
  3. QUETIAPINE (QUETIAPINE FUMARATE) [Concomitant]
  4. CALCIUM (CALCIUM) [Concomitant]
  5. VITAMIN D (VITAMIN D) [Concomitant]

REACTIONS (1)
  - Rhabdomyolysis [None]
